FAERS Safety Report 14958028 (Version 1)
Quarter: 2018Q2

REPORT INFORMATION
  Report Type: Spontaneous
  Country: US (occurrence: US)
  Receive Date: 20180531
  Receipt Date: 20180531
  Transmission Date: 20180711
  Serious: No
  Sender: FDA-Public Use
  Company Number: US-ENDO PHARMACEUTICALS INC-2017-005669

PATIENT
  Age: 6 Year
  Sex: Female
  Weight: 25.8 kg

DRUGS (3)
  1. SYNTHROID [Concomitant]
     Active Substance: LEVOTHYROXINE SODIUM
     Indication: CONGENITAL HYPOTHYROIDISM
     Dosage: 25 MCG, DAILY
     Route: 065
     Dates: start: 2011
  2. SUPPRELIN LA [Suspect]
     Active Substance: HISTRELIN ACETATE
     Indication: PRECOCIOUS PUBERTY
     Dosage: ONE 50 MG IMPLANT IN THE LEFT ARM, UNK
     Route: 065
     Dates: start: 20161228
  3. ALBUTEROL SULFATE. [Concomitant]
     Active Substance: ALBUTEROL SULFATE
     Indication: WHEEZING
     Dosage: UNK UNKNOWN, PRN
     Route: 065

REACTIONS (3)
  - Growth accelerated [Unknown]
  - Blood luteinising hormone increased [Unknown]
  - Device defective [Unknown]

NARRATIVE: CASE EVENT DATE: 20170821
